FAERS Safety Report 16718651 (Version 1)
Quarter: 2019Q3

REPORT INFORMATION
  Report Type: Spontaneous
  Country: US (occurrence: US)
  Receive Date: 20190820
  Receipt Date: 20190820
  Transmission Date: 20191005
  Serious: Yes (Other)
  Sender: FDA-Public Use
  Company Number: US-GILEAD-2019-0423842

PATIENT
  Sex: Male

DRUGS (1)
  1. TRUVADA [Suspect]
     Active Substance: EMTRICITABINE\TENOFOVIR DISOPROXIL FUMARATE
     Indication: PROPHYLAXIS AGAINST HIV INFECTION
     Dosage: UNK
     Route: 065
     Dates: end: 201812

REACTIONS (5)
  - Genotype drug resistance test positive [Unknown]
  - Acute HIV infection [Not Recovered/Not Resolved]
  - Drug ineffective [Unknown]
  - Syphilis [Unknown]
  - Intentional product use issue [Recovered/Resolved]
